FAERS Safety Report 8909201 (Version 1)
Quarter: 2012Q4

REPORT INFORMATION
  Report Type: Spontaneous
  Country: US (occurrence: None)
  Receive Date: 20121113
  Receipt Date: 20121113
  Transmission Date: 20130627
  Serious: Yes (Life-Threatening)
  Sender: FDA-Public Use
  Company Number: None

PATIENT
  Age: 58 Year
  Sex: Male

DRUGS (2)
  1. MORPHINE [Suspect]
     Indication: MYASTHENIA GRAVIS
     Dates: start: 20120417, end: 20120417
  2. MORPHINE [Suspect]
     Indication: SLEEP APNEA
     Dates: start: 20120417, end: 20120417

REACTIONS (1)
  - Respiratory arrest [None]
